FAERS Safety Report 11820819 (Version 1)
Quarter: 2015Q4

REPORT INFORMATION
  Report Type: Spontaneous
  Country: US (occurrence: US)
  Receive Date: 20151210
  Receipt Date: 20151210
  Transmission Date: 20160305
  Serious: No
  Sender: FDA-Public Use
  Company Number: US-JNJFOC-20150322985

PATIENT
  Age: 48 Year
  Sex: Male
  Weight: 106 kg

DRUGS (5)
  1. CIALIS [Concomitant]
     Active Substance: TADALAFIL
  2. IMBRUVICA [Suspect]
     Active Substance: IBRUTINIB
     Indication: LYMPHOMA
     Route: 048
  3. OXYCODONE [Concomitant]
     Active Substance: OXYCODONE
  4. VIAGRA [Concomitant]
     Active Substance: SILDENAFIL CITRATE
  5. IMBRUVICA [Suspect]
     Active Substance: IBRUTINIB
     Indication: LYMPHOMA
     Route: 048
     Dates: start: 20150212

REACTIONS (6)
  - Epistaxis [Recovering/Resolving]
  - Muscle spasms [Recovering/Resolving]
  - Fatigue [Unknown]
  - Hair colour changes [Not Recovered/Not Resolved]
  - Off label use [Unknown]
  - White blood cell count increased [Unknown]

NARRATIVE: CASE EVENT DATE: 2015
